FAERS Safety Report 8286630-8 (Version None)
Quarter: 2012Q2

REPORT INFORMATION
  Report Type: 
  Country: None (occurrence: None)
  Receive Date: 20120411
  Receipt Date: 20120327
  Transmission Date: 20120825
  Serious: Yes (Hospitalization)
  Sender: FDA-Public Use
  Company Number: 2012MA004391

PATIENT
  Age: 17 Year
  Sex: Female

DRUGS (1)
  1. METOCLOPRAMIDE HYDROCHLORIDE [Suspect]
     Dosage: 10 MG; TID; PO
     Route: 048
     Dates: start: 20120227, end: 20120229

REACTIONS (3)
  - SWELLING FACE [None]
  - TRISMUS [None]
  - OEDEMA PERIPHERAL [None]
